FAERS Safety Report 11615259 (Version 1)
Quarter: 2015Q4

REPORT INFORMATION
  Report Type: Spontaneous
  Country: US (occurrence: None)
  Receive Date: 20151008
  Receipt Date: 20151008
  Transmission Date: 20160304
  Serious: No
  Sender: FDA-Public Use
  Company Number: None

PATIENT
  Age: 49 Year
  Sex: Female
  Weight: 52.62 kg

DRUGS (13)
  1. PROZAC [Concomitant]
     Active Substance: FLUOXETINE HYDROCHLORIDE
  2. CLONAZEPAM. [Concomitant]
     Active Substance: CLONAZEPAM
  3. OXYCONTIN [Concomitant]
     Active Substance: OXYCODONE HYDROCHLORIDE
  4. BENADRYL [Concomitant]
     Active Substance: DIPHENHYDRAMINE HYDROCHLORIDE
  5. OXYCODONE [Concomitant]
     Active Substance: OXYCODONE
  6. BACLOFEN. [Concomitant]
     Active Substance: BACLOFEN
  7. IBUPROFEN. [Concomitant]
     Active Substance: IBUPROFEN
  8. DORZOLAMIDE HCI 2% ALCON LANORATORIES [Suspect]
     Active Substance: DORZOLAMIDE HYDROCHLORIDE
     Indication: OPEN ANGLE GLAUCOMA
     Route: 047
     Dates: start: 20151002, end: 20151005
  9. ATIVAN [Concomitant]
     Active Substance: LORAZEPAM
  10. SYNTHROID [Concomitant]
     Active Substance: LEVOTHYROXINE SODIUM
  11. VITAMIN D3 [Concomitant]
     Active Substance: CHOLECALCIFEROL
  12. CALCIUM [Concomitant]
     Active Substance: CALCIUM
  13. POTASSIUM [Concomitant]
     Active Substance: POTASSIUM

REACTIONS (8)
  - Vision blurred [None]
  - Blood pressure fluctuation [None]
  - Pain of skin [None]
  - Lymphadenopathy [None]
  - Ocular discomfort [None]
  - Blood glucose increased [None]
  - Headache [None]
  - Local swelling [None]

NARRATIVE: CASE EVENT DATE: 20151005
